FAERS Safety Report 15675535 (Version 2)
Quarter: 2018Q4

REPORT INFORMATION
  Report Type: Spontaneous
  Country: IT (occurrence: IT)
  Receive Date: 20181130
  Receipt Date: 20181207
  Transmission Date: 20190205
  Serious: Yes (Other)
  Sender: FDA-Public Use
  Company Number: IT-ASTRAZENECA-2018SF56345

PATIENT
  Age: 79 Year
  Sex: Male

DRUGS (8)
  1. NORVASC [Concomitant]
     Active Substance: AMLODIPINE BESYLATE
     Dosage: 10.0MG UNKNOWN
     Route: 048
  2. EBIXA [Concomitant]
     Active Substance: MEMANTINE HYDROCHLORIDE
     Dosage: 10.0MG UNKNOWN
  3. DEPAKIN [Concomitant]
     Active Substance: VALPROATE SODIUM
     Dosage: 300.0MG UNKNOWN
     Route: 048
  4. CARDIRENE [Concomitant]
     Active Substance: ASPIRIN DL-LYSINE
  5. LASIX [Concomitant]
     Active Substance: FUROSEMIDE
     Dosage: 50.0MG UNKNOWN
     Route: 048
  6. PANTORC [Concomitant]
     Active Substance: PANTOPRAZOLE SODIUM
     Dosage: 20.0MG UNKNOWN
     Route: 048
  7. QUETIAPINE. [Suspect]
     Active Substance: QUETIAPINE
     Indication: DEMENTIA
     Route: 048
     Dates: start: 20181116, end: 20181117
  8. ADENURIC [Concomitant]
     Active Substance: FEBUXOSTAT
     Dosage: 80.0MG UNKNOWN
     Route: 048

REACTIONS (3)
  - Drug ineffective [Unknown]
  - Product use in unapproved indication [Unknown]
  - Condition aggravated [Unknown]

NARRATIVE: CASE EVENT DATE: 20181116
